FAERS Safety Report 15614584 (Version 2)
Quarter: 2019Q1

REPORT INFORMATION
  Report Type: Spontaneous
  Country: CA (occurrence: CA)
  Receive Date: 20181113
  Receipt Date: 20190308
  Transmission Date: 20190417
  Serious: Yes (Hospitalization, Other)
  Sender: FDA-Public Use
  Company Number: CA-CELLTRION INC.-2018CA023836

PATIENT

DRUGS (3)
  1. INFLIXIMAB PFIZER (UNKNOWN) [Suspect]
     Active Substance: INFLIXIMAB
     Dosage: 5 MG/KG, INDUCTION AND MAINTENANCE EVERY 4 WEEKS
     Route: 065
  2. MESALAMINE. [Suspect]
     Active Substance: MESALAMINE
     Indication: COLITIS ULCERATIVE
     Dosage: 4 G, DAILY
     Route: 065
  3. INFLIXIMAB PFIZER (UNKNOWN) [Suspect]
     Active Substance: INFLIXIMAB
     Dosage: 5 MG/KG, INDUCTION AND MAINTENANCE EVERY 8 WEEKS
     Route: 065

REACTIONS (5)
  - Dyspnoea [Recovering/Resolving]
  - Pleuritic pain [Recovering/Resolving]
  - Abdominal symptom [Recovering/Resolving]
  - Interstitial lung disease [Recovering/Resolving]
  - Toxicity to various agents [Unknown]
